FAERS Safety Report 6048386-9 (Version None)
Quarter: 2009Q1

REPORT INFORMATION
  Report Type: 
  Country: None (occurrence: None)
  Receive Date: 20090123
  Receipt Date: 20090116
  Transmission Date: 20090719
  Serious: Yes (Hospitalization)
  Sender: FDA-Public Use
  Company Number: A0658932A

PATIENT
  Age: 61 Year
  Sex: Female
  Weight: 70.5 kg

DRUGS (11)
  1. AVANDIA [Suspect]
     Dosage: 4MG PER DAY
     Route: 048
     Dates: start: 20030401, end: 20070601
  2. METFORMIN [Concomitant]
  3. GEMFIBROZIL [Concomitant]
  4. CRESTOR [Concomitant]
  5. ZETIA [Concomitant]
  6. EVISTA [Concomitant]
  7. GLUCOPHAGE [Concomitant]
  8. METFORMIN [Concomitant]
  9. CRESTOR [Concomitant]
  10. ZETIA [Concomitant]
  11. GEMFIBROZIL [Concomitant]

REACTIONS (7)
  - FAT TISSUE INCREASED [None]
  - FOOT FRACTURE [None]
  - FRACTURE [None]
  - HUMERUS FRACTURE [None]
  - JOINT SPRAIN [None]
  - LIGAMENT INJURY [None]
  - WEIGHT INCREASED [None]
